FAERS Safety Report 5920981-4 (Version None)
Quarter: 2008Q4

REPORT INFORMATION
  Report Type: 
  Country: None (occurrence: None)
  Receive Date: 20081014
  Receipt Date: 20080528
  Transmission Date: 20090506
  Serious: Yes (Other)
  Sender: FDA-Public Use
  Company Number: 2008S1000187

PATIENT
  Age: 55 Year
  Sex: Male

DRUGS (4)
  1. ACITRETIN [Suspect]
     Indication: PSORIASIS
     Dosage: 50 MG; QD; PO, 20 MG; QD; PO, 10 MG; QD; PO
     Route: 048
     Dates: start: 20070901, end: 20080101
  2. ACITRETIN [Suspect]
     Indication: PSORIASIS
     Dosage: 50 MG; QD; PO, 20 MG; QD; PO, 10 MG; QD; PO
     Route: 048
     Dates: start: 20080101, end: 20080501
  3. ACITRETIN [Suspect]
     Indication: PSORIASIS
     Dosage: 50 MG; QD; PO, 20 MG; QD; PO, 10 MG; QD; PO
     Route: 048
     Dates: start: 20080501
  4. DOVOBET /01643201/ [Concomitant]

REACTIONS (1)
  - TYPE 2 DIABETES MELLITUS [None]
